FAERS Safety Report 24787044 (Version 1)
Quarter: 2024Q4

REPORT INFORMATION
  Report Type: Spontaneous
  Country: BE (occurrence: BE)
  Receive Date: 20241230
  Receipt Date: 20241230
  Transmission Date: 20250114
  Serious: Yes (Other)
  Sender: JOHNSON AND JOHNSON
  Company Number: BE-JNJFOC-20241263486

PATIENT
  Sex: Female

DRUGS (1)
  1. RISPERDAL [Suspect]
     Active Substance: RISPERIDONE
     Indication: Product used for unknown indication
     Dosage: INTERVAL: 2 DAYS AGO, FREQUENCY: ACUTE ON CHRONIC
     Route: 048

REACTIONS (2)
  - Drug abuse [Unknown]
  - Intentional self-injury [Unknown]
